FAERS Safety Report 16679675 (Version 2)
Quarter: 2019Q3

REPORT INFORMATION
  Report Type: Spontaneous
  Country: TW (occurrence: TW)
  Receive Date: 20190807
  Receipt Date: 20190911
  Transmission Date: 20191004
  Serious: Yes (Other)
  Sender: FDA-Public Use
  Company Number: PHHY2014TW185357

PATIENT
  Age: 44 Year
  Sex: Male

DRUGS (3)
  1. ALLOPURINOL. [Suspect]
     Active Substance: ALLOPURINOL
     Indication: PRODUCT USED FOR UNKNOWN INDICATION
     Dosage: 200 MG, QD
     Route: 065
  2. ATENOLOL. [Concomitant]
     Active Substance: ATENOLOL
     Indication: PRODUCT USED FOR UNKNOWN INDICATION
     Dosage: 100 MG, QD
     Route: 065
  3. HYDROXYUREA. [Concomitant]
     Active Substance: HYDROXYUREA
     Indication: PRODUCT USED FOR UNKNOWN INDICATION
     Dosage: 500 MG, UNK
     Route: 065
     Dates: start: 1999

REACTIONS (13)
  - White blood cell count increased [Unknown]
  - Bone marrow reticulin fibrosis [Unknown]
  - Hypertension [Unknown]
  - Anaemia macrocytic [Unknown]
  - Gastrointestinal haemorrhage [Unknown]
  - Myelofibrosis [Unknown]
  - Hyperplasia [Unknown]
  - Reticulin increased [Unknown]
  - Leukocytosis [Unknown]
  - Duodenal ulcer [Unknown]
  - Mouth ulceration [Unknown]
  - Leukoerythroblastosis [Unknown]
  - Hepatosplenomegaly [Unknown]

NARRATIVE: CASE EVENT DATE: 19890930
